FAERS Safety Report 25628959 (Version 2)
Quarter: 2025Q3

REPORT INFORMATION
  Report Type: Report from Study
  Country: US (occurrence: US)
  Receive Date: 20250731
  Receipt Date: 20250806
  Transmission Date: 20251021
  Serious: Yes (Other)
  Sender: ABBVIE
  Company Number: US-ABBVIE-6395464

PATIENT
  Age: 63 Year
  Sex: Male

DRUGS (1)
  1. HUMIRA [Suspect]
     Active Substance: ADALIMUMAB
     Indication: Product used for unknown indication
     Route: 058
     Dates: start: 20200617

REACTIONS (8)
  - Seizure [Unknown]
  - Injection site erythema [Unknown]
  - Cerebrovascular accident [Unknown]
  - Injection site papule [Unknown]
  - Incorrect dose administered [Unknown]
  - Device issue [Unknown]
  - Device defective [Unknown]
  - Diabetes mellitus [Unknown]

NARRATIVE: CASE EVENT DATE: 20240501
